FAERS Safety Report 18265547 (Version 1)
Quarter: 2020Q3

REPORT INFORMATION
  Report Type: Spontaneous
  Country: TR (occurrence: TR)
  Receive Date: 20200915
  Receipt Date: 20200915
  Transmission Date: 20201103
  Serious: Yes (Hospitalization, Other)
  Sender: FDA-Public Use
  Company Number: TR-LUPIN PHARMACEUTICALS INC.-2020-05842

PATIENT
  Age: 51 Year
  Sex: Female

DRUGS (1)
  1. CEFUROXIME. [Suspect]
     Active Substance: CEFUROXIME
     Indication: TOOTH ABSCESS
     Dosage: 1 GRAM, UNK
     Route: 030

REACTIONS (2)
  - Anaphylactic shock [Unknown]
  - Colitis ischaemic [Recovering/Resolving]
